FAERS Safety Report 8152424-7 (Version None)
Quarter: 2012Q1

REPORT INFORMATION
  Report Type: 
  Country: None (occurrence: None)
  Receive Date: 20120103
  Receipt Date: 20110924
  Transmission Date: 20120608
  Serious: No
  Sender: FDA-Public Use
  Company Number: AE-2011-001795

PATIENT
  Age: 57 Year
  Sex: Female
  Weight: 61.2356 kg

DRUGS (8)
  1. ONDANSETRON [Concomitant]
  2. PEGASYS [Concomitant]
  3. PROCHIZE VAGINAL SUPPOSITORY (HORMONES AND RELATED AGENTS) [Concomitant]
  4. ACETAMINOPHEN [Concomitant]
  5. INCIVEK [Suspect]
     Dosage: 93.75 MG (750 MG,1 IN 8 D),ORAL
     Route: 048
     Dates: start: 20110902
  6. ESTROGEL 6% (ESTRADIOL) [Concomitant]
  7. RIBAVIRIN [Concomitant]
  8. PROGESTERONE GEL (PROGESTERONE) [Concomitant]

REACTIONS (8)
  - DIZZINESS [None]
  - NAUSEA [None]
  - FATIGUE [None]
  - VOMITING [None]
  - FURUNCLE [None]
  - DYSPNOEA [None]
  - RASH MACULAR [None]
  - DIARRHOEA [None]
